FAERS Safety Report 20662049 (Version 1)
Quarter: 2022Q2

REPORT INFORMATION
  Report Type: Spontaneous
  Country: CN (occurrence: CN)
  Receive Date: 20220401
  Receipt Date: 20220401
  Transmission Date: 20220721
  Serious: Yes (Other)
  Sender: FDA-Public Use
  Company Number: CN-BAXTER-2022BAX006985

PATIENT
  Age: 62 Year
  Sex: Female
  Weight: 67 kg

DRUGS (10)
  1. CYCLOPHOSPHAMIDE [Suspect]
     Active Substance: CYCLOPHOSPHAMIDE
     Indication: Breast cancer female
     Dosage: FIRST CYCLE CHEMOTHERAPY (CYCLOPHOSPHAMIDE DILUTED WITH NORMAL SALINE)
     Route: 041
  2. CYCLOPHOSPHAMIDE [Suspect]
     Active Substance: CYCLOPHOSPHAMIDE
     Dosage: SECOND CYCLE (CYCLOPHOSPHAMIDE 0.9 G, DILUTED WITH NORMAL SALINE 50 ML).
     Route: 041
     Dates: start: 20220301, end: 20220301
  3. SODIUM CHLORIDE [Suspect]
     Active Substance: SODIUM CHLORIDE
     Indication: Medication dilution
     Dosage: FIRST CYCLE, EPIRUBICIN HYDROCHLORIDE DILUTED WITH NORMAL SALINE.
     Route: 041
  4. SODIUM CHLORIDE [Suspect]
     Active Substance: SODIUM CHLORIDE
     Dosage: SECOND CYCLE, EPIRUBICIN HYDROCHLORIDE 160 MG DILUTED WITH NORMAL SALINE 160 ML.
     Route: 041
     Dates: start: 20220301, end: 20220301
  5. SODIUM CHLORIDE [Suspect]
     Active Substance: SODIUM CHLORIDE
     Indication: Medication dilution
     Dosage: FIRST CYCLE CHEMOTHERAPY (CYCLOPHOSPHAMIDE DILUTED WITH NORMAL SALINE)
     Route: 041
  6. SODIUM CHLORIDE [Suspect]
     Active Substance: SODIUM CHLORIDE
     Dosage: SECOND CYCLE, (CYCLOPHOSPHAMIDE 0.9 G, DILUTED WITH NORMAL SALINE 50 ML)
     Route: 041
     Dates: start: 20220301, end: 20220301
  7. EPIRUBICIN [Suspect]
     Active Substance: EPIRUBICIN
     Indication: Breast cancer female
     Dosage: FIRST CYCLE, EPIRUBICIN HYDROCHLORIDE DILUTED WITH NORMAL SALINE.
     Route: 041
  8. EPIRUBICIN [Suspect]
     Active Substance: EPIRUBICIN
     Dosage: SECOND CYCLE, EPIRUBICIN HYDROCHLORIDE 160 MG DILUTED WITH NORMAL SALINE 160 ML.
     Route: 041
     Dates: start: 20220301, end: 20220301
  9. AZITHROMYCIN [Suspect]
     Active Substance: AZITHROMYCIN
     Indication: Anti-infective therapy
     Dosage: FIRST CYCLE.
     Route: 048
  10. AZITHROMYCIN [Suspect]
     Active Substance: AZITHROMYCIN
     Dosage: SECOND CYCLE
     Route: 048
     Dates: start: 20220228, end: 20220302

REACTIONS (3)
  - Drug-induced liver injury [Unknown]
  - Transaminases increased [Recovered/Resolved]
  - Cough [Recovered/Resolved]

NARRATIVE: CASE EVENT DATE: 20220301
